FAERS Safety Report 20190124 (Version 1)
Quarter: 2021Q4

REPORT INFORMATION
  Report Type: Spontaneous
  Country: US (occurrence: US)
  Receive Date: 20211215
  Receipt Date: 20211215
  Transmission Date: 20220303
  Serious: Yes (Hospitalization, Other)
  Sender: FDA-Public Use
  Company Number: US-009507513-2112USA003921

PATIENT
  Sex: Female

DRUGS (5)
  1. KEYTRUDA [Suspect]
     Active Substance: PEMBROLIZUMAB
     Indication: Endometrial cancer stage IV
     Dosage: UNK UNK, Q3W
     Route: 042
     Dates: start: 20210414, end: 20210414
  2. KEYTRUDA [Suspect]
     Active Substance: PEMBROLIZUMAB
     Dosage: UNK UNK, Q3W
     Route: 042
     Dates: start: 20210507, end: 20210507
  3. KEYTRUDA [Suspect]
     Active Substance: PEMBROLIZUMAB
     Dosage: UNK UNK, Q3W
     Route: 042
     Dates: start: 20210618, end: 20210618
  4. PREDNISONE [Suspect]
     Active Substance: PREDNISONE
     Dosage: UNK
     Dates: end: 20210830
  5. DAPSONE [Suspect]
     Active Substance: DAPSONE

REACTIONS (11)
  - Pneumonia [Recovering/Resolving]
  - Drug-induced liver injury [Recovering/Resolving]
  - Colitis microscopic [Recovering/Resolving]
  - Pneumonitis [Recovering/Resolving]
  - Adverse drug reaction [Recovering/Resolving]
  - Back injury [Recovering/Resolving]
  - Irritability [Recovering/Resolving]
  - Asthenia [Not Recovered/Not Resolved]
  - Asthenia [Not Recovered/Not Resolved]
  - Inappropriate schedule of product administration [Unknown]
  - Inappropriate schedule of product administration [Unknown]

NARRATIVE: CASE EVENT DATE: 20210101
